FAERS Safety Report 11178897 (Version 3)
Quarter: 2016Q1

REPORT INFORMATION
  Report Type: Report from Study
  Country: DE (occurrence: DE)
  Receive Date: 20150610
  Receipt Date: 20160311
  Transmission Date: 20160525
  Serious: Yes (Death, Other)
  Sender: FDA-Public Use
  Company Number: DE-ACTELION-A-NJ2015-119271

PATIENT
  Age: 43 Year
  Sex: Female

DRUGS (14)
  1. BUDESONID [Concomitant]
     Active Substance: BUDESONIDE
  2. VENTAVIS [Interacting]
     Active Substance: ILOPROST
     Indication: PULMONARY ARTERIAL HYPERTENSION
     Dosage: 2.5 MCG, 6ID
     Route: 055
     Dates: start: 20070510
  3. TREPROSTINIL [Suspect]
     Active Substance: TREPROSTINIL
     Indication: PRODUCT USED FOR UNKNOWN INDICATION
     Dosage: UNK
     Route: 065
     Dates: start: 20150310
  4. L-THYROX [Concomitant]
     Active Substance: LEVOTHYROXINE SODIUM
  5. VIGANTOLETTEN [Concomitant]
     Active Substance: CHOLECALCIFEROL
  6. ARIXTRA [Interacting]
     Active Substance: FONDAPARINUX SODIUM
     Indication: PRODUCT USED FOR UNKNOWN INDICATION
     Dosage: 2.5 MG, QD
     Route: 058
  7. PANTOZOL [Concomitant]
     Active Substance: PANTOPRAZOLE SODIUM
  8. SPIRONOLACTON [Concomitant]
     Active Substance: SPIRONOLACTONE
  9. VOLIBRIS [Concomitant]
     Active Substance: AMBRISENTAN
  10. AMIODARON [Concomitant]
     Active Substance: AMIODARONE
  11. ARTERENOL [Concomitant]
     Active Substance: NORADRENALINE HYDROCHLORIDE
  12. ADCIRCA [Concomitant]
     Active Substance: TADALAFIL
     Indication: PULMONARY ARTERIAL HYPERTENSION
     Route: 065
  13. ACC [Concomitant]
     Active Substance: ACETYLCYSTEINE
  14. FURESIS [Concomitant]
     Active Substance: FUROSEMIDE

REACTIONS (5)
  - Infection [Unknown]
  - Acute kidney injury [Unknown]
  - Death [Fatal]
  - Post procedural haematoma [Unknown]
  - Drug interaction [Unknown]

NARRATIVE: CASE EVENT DATE: 20150313
